FAERS Safety Report 8806527 (Version 3)
Quarter: 2013Q1

REPORT INFORMATION
  Report Type: Spontaneous
  Country: US (occurrence: US)
  Receive Date: 20120925
  Receipt Date: 20130125
  Transmission Date: 20140127
  Serious: Yes (Hospitalization, Other)
  Sender: FDA-Public Use
  Company Number: US-BAYER-2012-097529

PATIENT
  Age: 37 Year
  Sex: Female
  Weight: 86.17 kg

DRUGS (11)
  1. YAZ [Suspect]
     Indication: PREMENSTRUAL DYSPHORIC DISORDER
     Dosage: UNK
     Dates: start: 2001, end: 2009
  2. YAZ [Suspect]
     Indication: PREMENSTRUAL DYSPHORIC DISORDER
     Dosage: UNK
     Dates: start: 20080319, end: 20081204
  3. YASMIN [Suspect]
     Indication: PREMENSTRUAL DYSPHORIC DISORDER
     Dosage: UNK
     Dates: start: 2001, end: 2009
  4. YASMIN [Suspect]
     Indication: PREMENSTRUAL DYSPHORIC DISORDER
     Dosage: UNK
     Dates: start: 20080319, end: 20081204
  5. SINGULAIR [Concomitant]
  6. ALBUTEROL [Concomitant]
     Indication: ASTHMA
  7. ADVAIR [Concomitant]
     Indication: ASTHMA
  8. AUGMENTIN [Concomitant]
  9. Z-PAK [Concomitant]
     Indication: SINUSITIS
  10. IBUPROFEN [Concomitant]
     Dosage: UNK
     Dates: start: 2001, end: 2012
  11. VITAMINS [Concomitant]
     Dosage: UNK
     Dates: start: 2001, end: 2012

REACTIONS (9)
  - Cholecystectomy [None]
  - Oncologic complication [None]
  - Pain [None]
  - Injury [None]
  - General physical health deterioration [None]
  - Emotional distress [None]
  - Anxiety [None]
  - Pain [None]
  - Anhedonia [None]
